FAERS Safety Report 6586008 (Version 2)
Quarter: 2020Q3

REPORT INFORMATION
  Report Type: Spontaneous
  Country: DE (occurrence: DE)
  Receive Date: 20080317
  Receipt Date: 20080413
  Transmission Date: 20201105
  Serious: Yes (Death)
  Sender: FDA-Public Use
  Company Number: PHBS2008DE03109

PATIENT
  Age: 71 Year
  Sex: Female

DRUGS (64)
  1. FERROUS SULFATE. [Suspect]
     Active Substance: FERROUS SULFATE
     Indication: MINERAL SUPPLEMENTATION
     Dosage: 1 DF, QD
     Route: 048
     Dates: start: 20041103, end: 20041107
  2. SODIUM PERCHLORATE MONOHYDRATE [Suspect]
     Active Substance: SODIUM PERCHLORATE MONOHYDRATE
     Indication: HYPERTHYROIDISM
     Dosage: 20 GTT, TID
     Route: 048
     Dates: start: 20041006, end: 20041105
  3. KALINOR (CITRIC ACID MONOHYDRATE\POTASSIUM BICARBONATE\POTASSIUM CITRATE) [Suspect]
     Active Substance: CITRIC ACID MONOHYDRATE\POTASSIUM BICARBONATE\POTASSIUM CITRATE
     Dosage: 1 DF, QD
     Route: 048
     Dates: start: 20041023, end: 20041025
  4. METOCLOPRAMIDE. [Suspect]
     Active Substance: METOCLOPRAMIDE
     Indication: NAUSEA
     Dosage: UNK GTT, QD
     Route: 048
     Dates: start: 20041025, end: 20041028
  5. METHIMAZOLE. [Suspect]
     Active Substance: METHIMAZOLE
     Indication: HYPERTHYROIDISM
     Dosage: 50 MG, UNK
     Route: 048
     Dates: start: 20041006, end: 20041105
  6. PERFALGAN [Concomitant]
     Active Substance: ACETAMINOPHEN
     Dosage: 1 G, UNK
     Dates: start: 20041014, end: 20041014
  7. NOVALGIN (METAMIZOLE SODIUM) [Concomitant]
     Active Substance: METAMIZOLE SODIUM
     Dosage: 20 GTT, QD
     Dates: start: 20041017, end: 20041017
  8. DIGITOXIN [Concomitant]
     Active Substance: DIGITOXIN
     Dosage: 5 DF/DAY
     Dates: start: 20041106, end: 20041108
  9. MORPHINE [Concomitant]
     Active Substance: MORPHINE
     Dosage: 1 DF, BID
     Dates: start: 20041106, end: 20041109
  10. TAVANIC [Concomitant]
     Active Substance: LEVOFLOXACIN
     Dosage: 500 MG, QD
     Dates: start: 20041107, end: 20041110
  11. ACETYLSALICYLIC ACID [Suspect]
     Active Substance: ASPIRIN
     Indication: THROMBOSIS PROPHYLAXIS
     Dosage: 100 MG, QD
     Route: 048
     Dates: start: 20040729, end: 20041107
  12. MELPERONE HYDROCHLORIDE [Suspect]
     Active Substance: MELPERONE HYDROCHLORIDE
     Indication: SLEEP DISORDER
     Dosage: 1 ML, QD
     Route: 048
     Dates: start: 20041102, end: 20041107
  13. SORTIS [Suspect]
     Active Substance: ATORVASTATIN
     Indication: HYPERCHOLESTEROLAEMIA
     Dosage: 40 MG, QD
     Route: 048
     Dates: start: 20040729, end: 20041102
  14. DIFLUCAN [Concomitant]
     Active Substance: FLUCONAZOLE
     Dosage: 1 DF, QD
     Dates: start: 20041106, end: 20041110
  15. TAVOR (LORAZEPAM) [Suspect]
     Active Substance: LORAZEPAM
     Dosage: 1 DF, QD
     Route: 048
     Dates: start: 20041030, end: 20041030
  16. BELOC?ZOK [Suspect]
     Active Substance: METOPROLOL SUCCINATE
     Indication: ACUTE MYOCARDIAL INFARCTION
     Route: 048
     Dates: start: 20041012, end: 20041031
  17. DIGITOXIN [Suspect]
     Active Substance: DIGITOXIN
     Indication: CARDIAC FAILURE
     Route: 048
     Dates: start: 20041103, end: 20041111
  18. FUROSEMIDE. [Suspect]
     Active Substance: FUROSEMIDE
     Indication: POLYURIA
     Dosage: 10 MG/DAY
     Route: 048
     Dates: start: 20041101, end: 20041101
  19. KALINOR (POTASSIUM CHLORIDE) [Suspect]
     Active Substance: POTASSIUM CHLORIDE
     Route: 048
     Dates: start: 20041025, end: 20041027
  20. BROTIZOLAM [Suspect]
     Active Substance: BROTIZOLAM
     Indication: SLEEP DISORDER
     Dosage: 1 DF, QD
     Route: 048
     Dates: start: 20041103, end: 20041103
  21. BROTIZOLAM [Suspect]
     Active Substance: BROTIZOLAM
     Dosage: 1 DF, QD
     Route: 048
     Dates: start: 20041015, end: 20041024
  22. KLACID [Suspect]
     Active Substance: CLARITHROMYCIN
     Indication: PNEUMONIA
     Dosage: 250 MG, UNK
     Route: 048
     Dates: start: 20041018, end: 20041024
  23. PANTOZOL [Suspect]
     Active Substance: PANTOPRAZOLE SODIUM
     Indication: GASTROINTESTINAL ULCER
     Dosage: 40 MG, QD
     Route: 048
     Dates: start: 20041007, end: 20041031
  24. CLEXANE [Suspect]
     Active Substance: ENOXAPARIN SODIUM
     Indication: THROMBOSIS
     Dosage: 40 ML, BID
     Route: 058
     Dates: start: 20041011, end: 20041028
  25. GLUCOSE, LIQUID [Suspect]
     Active Substance: GLUCOSE, LIQUID
     Route: 042
     Dates: start: 20041108, end: 20041108
  26. KALINOR (POTASSIUM CHLORIDE) [Suspect]
     Active Substance: POTASSIUM CHLORIDE
     Indication: HYPOKALAEMIA
     Route: 048
     Dates: start: 20041101, end: 20041101
  27. KALINOR (CITRIC ACID MONOHYDRATE\POTASSIUM BICARBONATE\POTASSIUM CITRATE) [Suspect]
     Active Substance: CITRIC ACID MONOHYDRATE\POTASSIUM BICARBONATE\POTASSIUM CITRATE
     Indication: HYPOKALAEMIA
     Dosage: 1 DF, QD
     Route: 048
     Dates: start: 20001102, end: 20041104
  28. RAMIPRIL. [Suspect]
     Active Substance: RAMIPRIL
     Indication: ESSENTIAL HYPERTENSION
     Dosage: 5 DF, QD
     Route: 048
     Dates: start: 20041101, end: 20041102
  29. ALLOPURINOL. [Suspect]
     Active Substance: ALLOPURINOL
     Indication: HYPERURICAEMIA
     Dosage: 1 DF, QD
     Route: 048
     Dates: start: 20041024, end: 20041102
  30. HYDROCHLOROTHIAZIDE. [Suspect]
     Active Substance: HYDROCHLOROTHIAZIDE
     Indication: ESSENTIAL HYPERTENSION
     Dosage: 25 MG, QD
     Route: 048
     Dates: start: 20041012, end: 20041031
  31. MELPERONE HYDROCHLORIDE [Suspect]
     Active Substance: MELPERONE HYDROCHLORIDE
     Dosage: 1 ML, QD
     Route: 048
     Dates: start: 20041030, end: 20041031
  32. FUROSEMIDE. [Suspect]
     Active Substance: FUROSEMIDE
     Indication: POLYURIA
     Dosage: 40 MG, QD
     Route: 042
     Dates: start: 20041102, end: 20041111
  33. GLUCOSE, LIQUID [Suspect]
     Active Substance: GLUCOSE, LIQUID
     Indication: HYPOGLYCAEMIA
     Dosage: UNK, UNK
     Route: 042
     Dates: start: 20041102, end: 20041102
  34. CLOPIDOGREL [Suspect]
     Active Substance: CLOPIDOGREL BISULFATE
     Indication: THROMBOSIS PROPHYLAXIS
     Dosage: 75 MG, QD
     Route: 048
     Dates: start: 20041005, end: 20041107
  35. LANTUS [Suspect]
     Active Substance: INSULIN GLARGINE
     Indication: DIABETES MELLITUS
     Route: 058
     Dates: start: 20040729, end: 20041110
  36. BROTIZOLAM [Suspect]
     Active Substance: BROTIZOLAM
     Dosage: 1 DF, QD
     Route: 048
     Dates: start: 20041110, end: 20041110
  37. POTASSIUM CHLORIDE. [Suspect]
     Active Substance: POTASSIUM CHLORIDE
     Dosage: 40 MMOL, QD
     Route: 042
     Dates: start: 20041027, end: 20041027
  38. TAZOBACTAM [Concomitant]
     Active Substance: TAZOBACTAM
     Dosage: 4.5 MG, TID
     Dates: start: 20041007, end: 20041015
  39. UNSPECIFIED INGREDIENT [Concomitant]
     Active Substance: UNSPECIFIED INGREDIENT
     Dosage: 1 DF, TID
     Dates: start: 20041106, end: 20041110
  40. DIGITOXIN [Suspect]
     Active Substance: DIGITOXIN
     Route: 048
     Dates: start: 20041014, end: 20041027
  41. PIPAMPERONE [Suspect]
     Active Substance: PIPAMPERONE
     Indication: DISORIENTATION
     Dosage: 1 DF, QD
     Route: 048
     Dates: start: 20041103, end: 20041104
  42. HUMALOG [Suspect]
     Active Substance: INSULIN LISPRO
     Indication: DIABETES MELLITUS
     Dosage: 1 DF, TID
     Route: 058
     Dates: start: 20040729, end: 20041110
  43. LOPERAMIDE [Suspect]
     Active Substance: LOPERAMIDE
     Indication: DIARRHOEA
     Dosage: 2 DF, QD
     Route: 048
     Dates: start: 20041031, end: 20041031
  44. POTASSIUM CHLORIDE. [Suspect]
     Active Substance: POTASSIUM CHLORIDE
     Dosage: 40 MMOL, QD
     Route: 042
     Dates: start: 20041102, end: 20041104
  45. UNACID [Concomitant]
     Dosage: 1 G, TID
     Dates: start: 20041106, end: 20041106
  46. TAVOR (LORAZEPAM) [Suspect]
     Active Substance: LORAZEPAM
     Indication: SLEEP DISORDER
     Dosage: 1 DF, QD
     Route: 048
     Dates: start: 20041014, end: 20041014
  47. CARBAMAZEPINE. [Suspect]
     Active Substance: CARBAMAZEPINE
     Indication: AGITATION
     Dosage: 5 DF, BID
     Route: 048
     Dates: start: 20041101, end: 20041102
  48. METOCLOPRAMIDE. [Suspect]
     Active Substance: METOCLOPRAMIDE
     Route: 042
     Dates: start: 20041024, end: 20041025
  49. TOREM [Suspect]
     Active Substance: TORSEMIDE
     Indication: RENAL FAILURE
     Route: 048
     Dates: start: 20041012, end: 20041031
  50. TOREM [Suspect]
     Active Substance: TORSEMIDE
     Route: 048
     Dates: start: 20041102, end: 20041105
  51. HALOPERIDOL. [Concomitant]
     Active Substance: HALOPERIDOL
     Dosage: 20 GTT, BID
     Dates: start: 20041104, end: 20041105
  52. PREDNISOLONE SODIUM SUCCINATE [Concomitant]
     Active Substance: PREDNISOLONE SODIUM SUCCINATE
     Dates: start: 20041105, end: 20041110
  53. METOPROLOL. [Suspect]
     Active Substance: METOPROLOL
     Dosage: 200 MG, QD
     Route: 048
     Dates: start: 20041101, end: 20041107
  54. RAMIPRIL. [Suspect]
     Active Substance: RAMIPRIL
     Indication: ESSENTIAL HYPERTENSION
     Dosage: 2.5 MG, QD
     Route: 048
     Dates: start: 20041007, end: 20041031
  55. CALCIUM ACETATE\MAGNESIUM ACETATE\POTASSIUM ACETATE\SODIUM ACETATE\SODIUM CHLORIDE [Suspect]
     Active Substance: CALCIUM ACETATE\MAGNESIUM ACETATE\POTASSIUM ACETATE\SODIUM ACETATE\SODIUM CHLORI
     Indication: FLUID REPLACEMENT
     Route: 042
     Dates: start: 20041002, end: 20041111
  56. KALINOR (CITRIC ACID MONOHYDRATE\POTASSIUM BICARBONATE\POTASSIUM CITRATE) [Suspect]
     Active Substance: CITRIC ACID MONOHYDRATE\POTASSIUM BICARBONATE\POTASSIUM CITRATE
     Dosage: 1 DF, QD
     Route: 048
     Dates: start: 20041015, end: 20041020
  57. METOCLOPRAMIDE. [Suspect]
     Active Substance: METOCLOPRAMIDE
     Dosage: UNK GTT, QD
     Route: 048
     Dates: start: 20041023, end: 20041023
  58. SODIUM CHLORIDE. [Suspect]
     Active Substance: SODIUM CHLORIDE
     Indication: FLUID REPLACEMENT
     Dosage: 500 ML, QD
     Route: 042
     Dates: start: 20041024, end: 20041027
  59. PERFALGAN [Concomitant]
     Active Substance: ACETAMINOPHEN
     Dates: start: 20041021, end: 20041021
  60. FLUNITRAZEPAM [Concomitant]
     Active Substance: FLUNITRAZEPAM
     Dosage: 1 MG, QD
     Dates: start: 20041018, end: 20041018
  61. FENISTIL [Concomitant]
     Dosage: 1 DF, TID
     Dates: start: 20041104, end: 20041107
  62. FENISTIL [Concomitant]
     Dosage: 1 DF, QD
     Dates: start: 20041105, end: 20041105
  63. PROMETHAZINE HYDROCHLORIDE. [Concomitant]
     Active Substance: PROMETHAZINE HYDROCHLORIDE
     Dosage: 5 DF, BID
     Dates: start: 20041105, end: 20041108
  64. POLYSPECTRAN TROPFEN [Concomitant]
     Dosage: 1 DF, TID
     Dates: start: 20041108

REACTIONS (10)
  - Nikolsky^s sign [Fatal]
  - Oral disorder [Fatal]
  - Ocular hyperaemia [Fatal]
  - Swollen tongue [Fatal]
  - Pruritus [Fatal]
  - Purpura [Fatal]
  - Blister [Fatal]
  - Stevens-Johnson syndrome [Fatal]
  - Conjunctivitis [Fatal]
  - Lip erosion [Fatal]

NARRATIVE: CASE EVENT DATE: 20041104
